FAERS Safety Report 17603222 (Version 4)
Quarter: 2020Q2

REPORT INFORMATION
  Report Type: Spontaneous
  Country: US (occurrence: US)
  Receive Date: 20200331
  Receipt Date: 20200527
  Transmission Date: 20200713
  Serious: No
  Sender: FDA-Public Use
  Company Number: US-GLAXOSMITHKLINE-US2020AMR053192

PATIENT
  Sex: Female

DRUGS (4)
  1. ZEJULA [Suspect]
     Active Substance: NIRAPARIB
     Dosage: 1 DF, QD (AT NIGHT)
  2. ZEJULA [Suspect]
     Active Substance: NIRAPARIB
     Dosage: 200 MG, QD
     Dates: start: 20200226, end: 20200323
  3. ZEJULA [Suspect]
     Active Substance: NIRAPARIB
     Indication: OVARIAN CANCER
     Dosage: 200 MG, QD
     Dates: start: 20200226
  4. ZEJULA [Suspect]
     Active Substance: NIRAPARIB
     Dosage: 100 MG, DAILY
     Dates: start: 20200226

REACTIONS (9)
  - Red blood cell count decreased [Unknown]
  - Underdose [Unknown]
  - Platelet count decreased [Unknown]
  - Increased tendency to bruise [Unknown]
  - Blood pressure increased [Unknown]
  - Nausea [Unknown]
  - Weight decreased [Unknown]
  - Epistaxis [Unknown]
  - Dyspnoea [Recovering/Resolving]
